FAERS Safety Report 9127591 (Version 1)
Quarter: 2013Q1

REPORT INFORMATION
  Report Type: Spontaneous
  Country: US (occurrence: US)
  Receive Date: 20130228
  Receipt Date: 20130228
  Transmission Date: 20140127
  Serious: No
  Sender: FDA-Public Use
  Company Number: US-GLAXOSMITHKLINE-A0986403A

PATIENT
  Age: 71 Year
  Sex: Male
  Weight: 80.9 kg

DRUGS (3)
  1. LAMICTAL [Suspect]
     Indication: BIPOLAR DISORDER
     Route: 048
     Dates: start: 2008
  2. SEROQUEL [Concomitant]
     Indication: BIPOLAR DISORDER
     Dosage: 50MG AT NIGHT
     Route: 048
     Dates: start: 2008
  3. NEURONTIN [Concomitant]
     Indication: PAIN
     Dosage: 600MG THREE TIMES PER DAY
     Route: 048
     Dates: start: 2007

REACTIONS (2)
  - Ataxia [Recovering/Resolving]
  - Paraesthesia [Recovering/Resolving]
